FAERS Safety Report 11267389 (Version 2)
Quarter: 2015Q3

REPORT INFORMATION
  Report Type: Spontaneous
  Country: JP (occurrence: JP)
  Receive Date: 20150713
  Receipt Date: 20150724
  Transmission Date: 20151125
  Serious: Yes (Death, Other)
  Sender: FDA-Public Use
  Company Number: JP-MYLANLABS-2015M1022212

PATIENT

DRUGS (4)
  1. DEFEROXAMINE [Suspect]
     Active Substance: DEFEROXAMINE\DEFEROXAMINE MESYLATE
     Indication: DIABETIC NEPHROPATHY
  2. PREDNISOLONE. [Suspect]
     Active Substance: PREDNISOLONE
     Indication: DIABETIC NEPHROPATHY
  3. PREDNISOLONE. [Suspect]
     Active Substance: PREDNISOLONE
     Indication: CHRONIC KIDNEY DISEASE
     Route: 048
  4. DEFEROXAMINE [Suspect]
     Active Substance: DEFEROXAMINE\DEFEROXAMINE MESYLATE
     Indication: CHRONIC KIDNEY DISEASE
     Route: 065

REACTIONS (2)
  - Mucormycosis [Fatal]
  - Pleurisy [Fatal]
